FAERS Safety Report 14447996 (Version 3)
Quarter: 2020Q2

REPORT INFORMATION
  Report Type: Report from Study
  Country: US (occurrence: US)
  Receive Date: 20180126
  Receipt Date: 20200529
  Transmission Date: 20200713
  Serious: Yes (Life-Threatening, Hospitalization)
  Sender: FDA-Public Use
  Company Number: US-SHIRE-US201720124

PATIENT
  Age: 56 Year
  Sex: Female
  Weight: 95.1 kg

DRUGS (1)
  1. PARATHYROID HORMONE [Suspect]
     Active Substance: PARATHYROID HORMONE
     Indication: HYPOPARATHYROIDISM
     Dosage: 50 MICROGRAM, 1X/DAY:QD
     Route: 058
     Dates: start: 20170717

REACTIONS (2)
  - Bacterial infection [Recovered/Resolved]
  - Endocarditis [Recovered/Resolved]

NARRATIVE: CASE EVENT DATE: 20170809
